FAERS Safety Report 5858298-9 (Version None)
Quarter: 2008Q3

REPORT INFORMATION
  Report Type: 
  Country: None (occurrence: None)
  Receive Date: 20080826
  Receipt Date: 20080821
  Transmission Date: 20090109
  Serious: Yes (Other)
  Sender: FDA-Public Use
  Company Number: A0744539A

PATIENT
  Age: 51 Year
  Sex: Female
  Weight: 124.1 kg

DRUGS (7)
  1. AVANDIA [Suspect]
     Dosage: 4MG TWICE PER DAY
     Route: 048
     Dates: start: 20060309, end: 20070211
  2. AVANDAMET [Suspect]
     Route: 048
     Dates: start: 20060817, end: 20061013
  3. AMARYL [Concomitant]
  4. LANTUS [Concomitant]
  5. METFORMIN HCL [Concomitant]
  6. GLUCOPHAGE [Concomitant]
  7. SYMLIN [Concomitant]

REACTIONS (1)
  - CEREBROVASCULAR ACCIDENT [None]
